FAERS Safety Report 6708420-7 (Version None)
Quarter: 2010Q2

REPORT INFORMATION
  Report Type: 
  Country: None (occurrence: None)
  Receive Date: 20100503
  Receipt Date: 20090903
  Transmission Date: 20101027
  Serious: No
  Sender: FDA-Public Use
  Company Number: US-ASTRAZENECA-2009SE11253

PATIENT
  Age: 39 Year
  Sex: Female

DRUGS (3)
  1. NEXIUM [Suspect]
     Indication: HIATUS HERNIA
     Route: 048
     Dates: start: 20090815
  2. ZYRTEC [Concomitant]
  3. FLOVENT [Concomitant]

REACTIONS (2)
  - RASH [None]
  - SCAB [None]
